FAERS Safety Report 17876514 (Version 2)
Quarter: 2020Q2

REPORT INFORMATION
  Report Type: Spontaneous
  Country: HK (occurrence: HK)
  Receive Date: 20200609
  Receipt Date: 20200616
  Transmission Date: 20200714
  Serious: Yes (Other)
  Sender: FDA-Public Use
  Company Number: HK-PFIZER INC-2020223759

PATIENT
  Sex: Male

DRUGS (4)
  1. METHYLPREDNISOLONE SODIUM SUCCINATE. [Suspect]
     Active Substance: METHYLPREDNISOLONE SODIUM SUCCINATE
     Indication: SEVERE ACUTE RESPIRATORY SYNDROME
     Dosage: 500 MG (2 COURSES OF PULSED METHYLPREDNISOLONE)
     Route: 064
  2. METHYLPREDNISOLONE SODIUM SUCCINATE. [Suspect]
     Active Substance: METHYLPREDNISOLONE SODIUM SUCCINATE
     Dosage: 3 G (2 COURSES OF PULSED METHYLPREDNISOLONE)
     Route: 064
  3. HYDROCORTISONE. [Suspect]
     Active Substance: HYDROCORTISONE
     Indication: SEVERE ACUTE RESPIRATORY SYNDROME
     Dosage: 200 MG, 3X/DAY, (EVERY 8 HOURS)
     Route: 064
  4. RIBAVIRIN. [Suspect]
     Active Substance: RIBAVIRIN
     Indication: SEVERE ACUTE RESPIRATORY SYNDROME
     Dosage: UNK
     Route: 064

REACTIONS (2)
  - Foetal growth restriction [Unknown]
  - Maternal exposure during pregnancy [Unknown]
